FAERS Safety Report 7775482-8 (Version None)
Quarter: 2011Q3

REPORT INFORMATION
  Report Type: 
  Country: None (occurrence: None)
  Receive Date: 20110923
  Receipt Date: 20110921
  Transmission Date: 20111222
  Serious: Yes (Death)
  Sender: FDA-Public Use
  Company Number: PHHY2011BR52418

PATIENT
  Sex: Female

DRUGS (4)
  1. EXELON [Suspect]
     Indication: DEMENTIA ALZHEIMER'S TYPE
     Dosage: 27MG/15CM^2 ONE PATCH DAILY
     Route: 062
  2. INDAPAMIDE [Concomitant]
     Indication: HYPERTENSION
     Dosage: UNK UKN, QD
     Route: 048
     Dates: end: 20110101
  3. SEROQUEL [Concomitant]
     Indication: DEMENTIA ALZHEIMER'S TYPE
     Dosage: 25 MG, BID
     Route: 048
     Dates: end: 20110101
  4. LEXOTAN [Concomitant]
     Indication: SLEEP DISORDER
     Dosage: 3 MG, QD
     Route: 048
     Dates: end: 20110101

REACTIONS (1)
  - INFARCTION [None]
